FAERS Safety Report 6204674-4 (Version None)
Quarter: 2009Q2

REPORT INFORMATION
  Report Type: 
  Country: None (occurrence: None)
  Receive Date: 20090527
  Receipt Date: 20090515
  Transmission Date: 20091009
  Serious: Yes (Hospitalization, Disabling)
  Sender: FDA-Public Use
  Company Number: PHHY2009JP07082

PATIENT
  Sex: Male

DRUGS (3)
  1. DIOVAN T30230+TAB+HY [Suspect]
     Dosage: 1 TABLET(80 MG) DAILY
     Route: 048
     Dates: start: 20071203
  2. NORVASC [Concomitant]
     Indication: HYPERTENSION
     Dosage: 5 MG
     Route: 048
     Dates: start: 20040101
  3. SERMION [Concomitant]
     Dosage: 10 MG
     Route: 048
     Dates: start: 20040101

REACTIONS (4)
  - BLOOD UREA INCREASED [None]
  - CEREBRAL INFARCTION [None]
  - DEHYDRATION [None]
  - HEMIANOPIA HOMONYMOUS [None]
